FAERS Safety Report 9462005 (Version 1)
Quarter: 2013Q3

REPORT INFORMATION
  Report Type: Spontaneous
  Country: US (occurrence: None)
  Receive Date: 20130815
  Receipt Date: 20130815
  Transmission Date: 20140515
  Serious: Yes (Hospitalization)
  Sender: FDA-Public Use
  Company Number: None

PATIENT
  Age: 49 Year
  Sex: Male
  Weight: 109.8 kg

DRUGS (7)
  1. XANAX ER [Suspect]
     Route: 048
  2. BENADRYL [Suspect]
     Indication: INSOMNIA
  3. SAPHRIS [Concomitant]
  4. LAMICTAL [Concomitant]
  5. OMEPRAZOLE [Concomitant]
  6. EFFEXOR XR [Concomitant]
  7. COUMADIN [Concomitant]

REACTIONS (3)
  - Sedation [None]
  - Extra dose administered [None]
  - Confusional state [None]
